FAERS Safety Report 5917657-6 (Version None)
Quarter: 2008Q4

REPORT INFORMATION
  Report Type: 
  Country: None (occurrence: None)
  Receive Date: 20081014
  Receipt Date: 20081007
  Transmission Date: 20090506
  Serious: Yes (Hospitalization)
  Sender: FDA-Public Use
  Company Number: US-BRISTOL-MYERS SQUIBB COMPANY-14367528

PATIENT
  Age: 59 Year
  Sex: Male

DRUGS (2)
  1. PRINIVIL [Suspect]
     Route: 048
     Dates: start: 20070614, end: 20071119
  2. POTASSIUM CHLORIDE [Suspect]
     Indication: HYPERTENSION
     Route: 048
     Dates: start: 20071030, end: 20071119

REACTIONS (4)
  - ASTHENIA [None]
  - DIARRHOEA [None]
  - DYSPNOEA [None]
  - HYPERKALAEMIA [None]
